FAERS Safety Report 7439623-4 (Version None)
Quarter: 2011Q2

REPORT INFORMATION
  Report Type: 
  Country: None (occurrence: None)
  Receive Date: 20110427
  Receipt Date: 20110426
  Transmission Date: 20111010
  Serious: Yes (Hospitalization)
  Sender: FDA-Public Use
  Company Number: BR-B.I. PHARMACEUTICALS,INC./RIDGEFIELD-2011-BR-00369BR

PATIENT
  Age: 62 Year
  Sex: Male

DRUGS (5)
  1. PRADAXA [Suspect]
     Indication: FEMUR FRACTURE
     Dosage: 220 MG
     Route: 048
     Dates: start: 20110319, end: 20110418
  2. MICARDIS [Concomitant]
     Indication: ACUTE MYOCARDIAL INFARCTION
     Dosage: 40 MG
     Route: 048
     Dates: start: 20100801
  3. ASPIRIN [Concomitant]
     Indication: ACUTE MYOCARDIAL INFARCTION
     Dosage: 100 MG
     Route: 048
     Dates: start: 20100801
  4. SYNTHROID [Concomitant]
     Indication: HYPOTHYROIDISM
     Dosage: 0.75 NR
     Route: 048
     Dates: start: 20080101
  5. CLOPIDOGREL [Concomitant]
     Indication: ACUTE MYOCARDIAL INFARCTION
     Dosage: 75 MG
     Route: 048
     Dates: start: 20100801

REACTIONS (2)
  - FALL [None]
  - DEEP VEIN THROMBOSIS [None]
